APPROVED DRUG PRODUCT: DERMOTIC
Active Ingredient: FLUOCINOLONE ACETONIDE
Strength: 0.01%
Dosage Form/Route: OIL/DROPS;OTIC
Application: N019452 | Product #003 | TE Code: AT
Applicant: HILL DERMACEUTICALS INC
Approved: Nov 9, 2005 | RLD: Yes | RS: Yes | Type: RX